FAERS Safety Report 5523032-9 (Version None)
Quarter: 2007Q4

REPORT INFORMATION
  Report Type: 
  Country: None (occurrence: None)
  Receive Date: 20071116
  Receipt Date: 20071116
  Transmission Date: 20080405
  Serious: Yes (Other)
  Sender: FDA-Public Use
  Company Number: None

PATIENT
  Age: 47 Year
  Sex: Male
  Weight: 96.6162 kg

DRUGS (1)
  1. CYMBALTA [Suspect]
     Indication: DEPRESSION
     Dosage: 30MG 1 PER DAY PO
     Route: 048
     Dates: start: 20071022, end: 20071110

REACTIONS (25)
  - ABDOMINAL PAIN LOWER [None]
  - APHTHOUS STOMATITIS [None]
  - ATAXIA [None]
  - CARDIAC FIBRILLATION [None]
  - COLD SWEAT [None]
  - COLITIS [None]
  - DIARRHOEA [None]
  - DRUG WITHDRAWAL SYNDROME [None]
  - EJACULATION DISORDER [None]
  - ERECTILE DYSFUNCTION [None]
  - FEELING JITTERY [None]
  - INSOMNIA [None]
  - IRRITABLE BOWEL SYNDROME [None]
  - MICTURITION URGENCY [None]
  - MOOD SWINGS [None]
  - NERVOUSNESS [None]
  - NIGHT SWEATS [None]
  - ORGASM ABNORMAL [None]
  - POLLAKIURIA [None]
  - SLEEP DISORDER [None]
  - STOMACH DISCOMFORT [None]
  - UPPER RESPIRATORY TRACT INFECTION [None]
  - URINARY HESITATION [None]
  - URINE FLOW DECREASED [None]
  - WEIGHT DECREASED [None]
